FAERS Safety Report 4585985-5 (Version None)
Quarter: 2005Q1

REPORT INFORMATION
  Report Type: 
  Country: None (occurrence: None)
  Receive Date: 20050125
  Receipt Date: 20040929
  Transmission Date: 20050727
  Serious: No
  Sender: FDA-Public Use
  Company Number: USA040568245

PATIENT
  Age: 68 Year
  Sex: Female
  Weight: 73 kg

DRUGS (4)
  1. FORTEO [Suspect]
     Indication: OSTEOPOROSIS
     Dosage: 20 UG/1 DAY
     Dates: start: 20040201
  2. PREMPRO [Concomitant]
  3. SYNTHROID [Concomitant]
  4. VIACTIV [Concomitant]

REACTIONS (5)
  - ANXIETY [None]
  - BONE PAIN [None]
  - INJECTION SITE ERYTHEMA [None]
  - PRURITUS [None]
  - SKIN DISCOLOURATION [None]
